FAERS Safety Report 8888858 (Version 1)
Quarter: 2012Q4

REPORT INFORMATION
  Report Type: 
  Country: US (occurrence: US)
  Receive Date: 20121106
  Receipt Date: 20121106
  Transmission Date: 20130627
  Serious: Yes (Other)
  Sender: FDA-Public Use
  Company Number: US-TEVA-367959USA

PATIENT
  Age: 32 Year
  Sex: Female

DRUGS (1)
  1. COPAXONE [Suspect]
     Indication: MULTIPLE SCLEROSIS
     Dates: start: 20120802

REACTIONS (6)
  - Multiple sclerosis relapse [Unknown]
  - Paraesthesia [Unknown]
  - Muscular weakness [Unknown]
  - Gait disturbance [Unknown]
  - Dyspnoea [Unknown]
  - Headache [Unknown]
